FAERS Safety Report 13711431 (Version 1)
Quarter: 2017Q3

REPORT INFORMATION
  Report Type: Spontaneous
  Country: US (occurrence: US)
  Receive Date: 20170701
  Receipt Date: 20170701
  Transmission Date: 20171127
  Serious: Yes (Disabling)
  Sender: FDA-Public Use
  Company Number: None

PATIENT
  Age: 55 Year
  Sex: Female
  Weight: 65.25 kg

DRUGS (14)
  1. MULTI-VITAMIN [Concomitant]
     Active Substance: .ALPHA.-TOCOPHEROL ACETATE, DL-\ASCORBIC ACID\CYANOCOBALAMIN\FLUORIDE ION\FOLIC ACID\NIACIN\PYRIDOXINE\RIBOFLAVIN\THIAMINE\VITAMIN A\VITAMIN D
  2. MITOCHONDRIAL + ENERGY ASSIST [Concomitant]
  3. CAPSAICIN. [Concomitant]
     Active Substance: CAPSAICIN
  4. DEXAMETHASONE. [Concomitant]
     Active Substance: DEXAMETHASONE
  5. CIPROFLOXACIN. [Suspect]
     Active Substance: CIPROFLOXACIN
     Indication: SINUSITIS
     Dosage: ?          OTHER STRENGTH:MG;QUANTITY:1 TABLET(S);?
     Route: 048
     Dates: start: 20161115, end: 20161118
  6. BEE POLLEN [Concomitant]
     Active Substance: BEE POLLEN
  7. APPLE CIDER VINEGAR [Concomitant]
     Active Substance: APPLE CIDER VINEGAR
  8. BOSWELLIA EXTRACT [Concomitant]
  9. ALEVE [Concomitant]
     Active Substance: NAPROXEN SODIUM
  10. TUMERIC [Concomitant]
     Active Substance: HERBALS\TURMERIC
  11. CALCIUM [Concomitant]
     Active Substance: CALCIUM
  12. BEE PROPOLIS [Concomitant]
  13. WINTERGREEN OIL [Concomitant]
     Active Substance: METHYL SALICYLATE
  14. OMEGA 3 [Concomitant]
     Active Substance: OMEGA-3 FATTY ACIDS

REACTIONS (4)
  - Tendonitis [None]
  - Mental disorder [None]
  - Epicondylitis [None]
  - Mitochondrial toxicity [None]

NARRATIVE: CASE EVENT DATE: 20161117
